FAERS Safety Report 12731552 (Version 2)
Quarter: 2016Q4

REPORT INFORMATION
  Report Type: Spontaneous
  Country: DE (occurrence: DE)
  Receive Date: 20160912
  Receipt Date: 20161201
  Transmission Date: 20170207
  Serious: Yes (Disabling)
  Sender: FDA-Public Use
  Company Number: DE-DRREDDYS-GER/GER/16/0082933

PATIENT
  Age: 62 Year
  Sex: Male

DRUGS (3)
  1. TERBINAFIN BETA 250 MG TABLETTEN [Suspect]
     Active Substance: TERBINAFINE
     Indication: ONYCHOMYCOSIS
     Route: 048
     Dates: start: 20160820, end: 20160827
  2. AQUAPHOR [Concomitant]
     Active Substance: PETROLATUM
     Indication: HYPERTENSION
  3. AMLODIPIN [Concomitant]
     Active Substance: AMLODIPINE BESYLATE
     Indication: HYPERTENSION

REACTIONS (2)
  - Eye haemorrhage [Recovered/Resolved with Sequelae]
  - Retinal tear [Recovered/Resolved with Sequelae]

NARRATIVE: CASE EVENT DATE: 201608
